FAERS Safety Report 7371761-7 (Version None)
Quarter: 2011Q1

REPORT INFORMATION
  Report Type: 
  Country: None (occurrence: None)
  Receive Date: 20110324
  Receipt Date: 20110310
  Transmission Date: 20110831
  Serious: Yes (Other)
  Sender: FDA-Public Use
  Company Number: PHHY2011NL20078

PATIENT
  Sex: Female

DRUGS (2)
  1. ZOMETA [Suspect]
     Dosage: 4MG/5ML PER 21 DAYS
     Dates: start: 20110310
  2. ZOMETA [Suspect]
     Indication: BREAST CANCER METASTATIC
     Dosage: 4MG/5ML PER 21 DAYS
     Dates: start: 20110217

REACTIONS (9)
  - TUMOUR MARKER INCREASED [None]
  - HEPATIC FUNCTION ABNORMAL [None]
  - VOMITING [None]
  - BONE SCAN ABNORMAL [None]
  - CHILLS [None]
  - MYALGIA [None]
  - BODY TEMPERATURE INCREASED [None]
  - NAUSEA [None]
  - ARTHRALGIA [None]
